FAERS Safety Report 14318016 (Version 3)
Quarter: 2019Q2

REPORT INFORMATION
  Report Type: Report from Study
  Country: GB (occurrence: GB)
  Receive Date: 20171222
  Receipt Date: 20190516
  Transmission Date: 20190711
  Serious: Yes (Hospitalization)
  Sender: FDA-Public Use
  Company Number: GB-PFIZER INC-2017537571

PATIENT
  Age: 48 Year
  Sex: Female
  Weight: 79.8 kg

DRUGS (78)
  1. DALTEPARIN [Concomitant]
     Active Substance: DALTEPARIN
     Dosage: UNK
     Dates: start: 2014
  2. CISPLATIN. [Concomitant]
     Active Substance: CISPLATIN
     Dosage: 85 MG, EVERY 3 WEEKS
     Route: 042
     Dates: start: 20140313, end: 20140313
  3. FENTANYL. [Concomitant]
     Active Substance: FENTANYL
     Dosage: UNK
     Dates: start: 20140818, end: 20140820
  4. ONDANSETRON [Concomitant]
     Active Substance: ONDANSETRON
     Dosage: 8 MG, UNK
     Route: 042
     Dates: start: 20140313, end: 20140313
  5. MAGNASPARTATE [Concomitant]
     Indication: BLOOD MAGNESIUM DECREASED
     Dosage: UNK
     Dates: start: 201311
  6. NAPROXEN. [Concomitant]
     Active Substance: NAPROXEN
     Dosage: 1120 MG, 1X/DAY
     Route: 048
  7. GEMCITABINE [Concomitant]
     Active Substance: GEMCITABINE\GEMCITABINE HYDROCHLORIDE
     Dosage: 1000 MG/M2, EVERY 3 WEEKS
     Route: 042
     Dates: start: 20140117
  8. RANITIDINE. [Concomitant]
     Active Substance: RANITIDINE
     Dosage: 300 MG, 1X/DAY
     Route: 048
     Dates: start: 20140219, end: 20140221
  9. RANITIDINE. [Concomitant]
     Active Substance: RANITIDINE
     Dosage: ONCE PRE-CHEMOTHERAPY
     Route: 042
     Dates: start: 20140313, end: 20140313
  10. CISPLATIN. [Concomitant]
     Active Substance: CISPLATIN
     Dosage: 85 MG, UNK
     Route: 042
     Dates: start: 20131220, end: 20140220
  11. MAGNASPARTATE [Concomitant]
     Dosage: 1 SACHET
     Route: 065
     Dates: start: 20140318
  12. CETIRIZINE [Concomitant]
     Active Substance: CETIRIZINE HYDROCHLORIDE
     Dosage: 10 MG, 1X/DAY
     Route: 048
     Dates: start: 20140312, end: 20140315
  13. APREPITANT. [Concomitant]
     Active Substance: APREPITANT
     Dosage: 80 MG, 1X/DAY
     Route: 048
     Dates: start: 20140314, end: 20140315
  14. LORAZEPAM. [Concomitant]
     Active Substance: LORAZEPAM
     Dosage: 0.5 MG, UNK
     Route: 065
     Dates: start: 20141016, end: 20141016
  15. DEXAMETHASONE. [Concomitant]
     Active Substance: DEXAMETHASONE
     Dosage: 8 MG (ONCE PRE-CHEMOTHERAPY)
     Route: 042
     Dates: start: 20140313, end: 20140313
  16. MEBEVERINE [Concomitant]
     Active Substance: MEBEVERINE
     Indication: IRRITABLE BOWEL SYNDROME
     Dosage: 270 MG, 1X/DAY
     Route: 048
  17. FENTANYL. [Concomitant]
     Active Substance: FENTANYL
     Dosage: 6 MCG / HOURPATCH
     Route: 065
     Dates: start: 20140716, end: 20140818
  18. SODIUM CHLORIDE. [Concomitant]
     Active Substance: SODIUM CHLORIDE
     Dosage: 1000 ML, UNK (OVER 2 HOURS)
     Route: 042
     Dates: start: 20140207, end: 20140207
  19. SODIUM CHLORIDE. [Concomitant]
     Active Substance: SODIUM CHLORIDE
     Dosage: 1 DROP EACH NOSTRILS
  20. GEMCITABINE [Concomitant]
     Active Substance: GEMCITABINE\GEMCITABINE HYDROCHLORIDE
     Indication: CHEMOTHERAPY
     Dosage: 1500 MG (ON DAY 1 AND DAY 8 OF CHEMOTHERAPY REGIME)
     Route: 042
     Dates: start: 20140313, end: 20140313
  21. DIAZEPAM. [Concomitant]
     Active Substance: DIAZEPAM
     Indication: ANXIETY
     Dosage: 5-15MG
     Dates: start: 201312, end: 201408
  22. CARBOPLATIN. [Concomitant]
     Active Substance: CARBOPLATIN
     Dosage: 375 MG, EVERY 3 WEEKS
     Route: 042
     Dates: start: 20140207, end: 20140207
  23. MANNITOL. [Concomitant]
     Active Substance: MANNITOL
     Dosage: 200 ML, UNK
     Route: 042
     Dates: start: 20131220, end: 20140220
  24. DOXORUBICIN [Suspect]
     Active Substance: DOXORUBICIN
     Dosage: 76 MG, UNK
     Dates: start: 20141008, end: 20141008
  25. AVASTIN [Suspect]
     Active Substance: BEVACIZUMAB
     Indication: OVARIAN CANCER
     Dosage: 7.5 MG/KG, EVERY 3 WEEKS (TOTAL DOSE RECEIVED: 600 MG)
     Route: 042
     Dates: start: 20130403, end: 20131227
  26. PREGABALIN. [Concomitant]
     Active Substance: PREGABALIN
     Dosage: UNK
     Dates: start: 201407, end: 20140826
  27. AMITRIPTYLINE [Concomitant]
     Active Substance: AMITRIPTYLINE
     Dosage: UNK
     Route: 048
  28. MAGNASPARTATE [Concomitant]
     Dosage: 1-2 SACHET
     Route: 048
     Dates: start: 20140222, end: 20140317
  29. CETIRIZINE [Concomitant]
     Active Substance: CETIRIZINE HYDROCHLORIDE
     Dosage: 10 MG, 1X/DAY
     Route: 048
     Dates: start: 20140219, end: 20140221
  30. APREPITANT. [Concomitant]
     Active Substance: APREPITANT
     Dosage: 125 MG, UNK
     Route: 048
     Dates: start: 20140313, end: 20140313
  31. APREPITANT. [Concomitant]
     Active Substance: APREPITANT
     Dosage: 80 MG, 1X/DAY
     Route: 048
     Dates: start: 20140222, end: 20140223
  32. NAPROXEN. [Concomitant]
     Active Substance: NAPROXEN
     Dosage: 1500 MG, 1X/DAY
     Route: 048
     Dates: end: 20140325
  33. MOMETASONE FUROATE. [Concomitant]
     Active Substance: MOMETASONE FUROATE
     Dosage: 100 UG, 1X/DAY (2 SPRAY DAILY)
     Route: 045
     Dates: start: 201403
  34. GEMCITABINE [Concomitant]
     Active Substance: GEMCITABINE\GEMCITABINE HYDROCHLORIDE
     Dosage: 1500 MG, EVERY 3 WEEKS
     Route: 042
     Dates: start: 20140207, end: 20140207
  35. PARACETAMOL [Concomitant]
     Active Substance: ACETAMINOPHEN
     Dosage: 4 G, 1X/DAY
     Route: 048
  36. RANITIDINE. [Concomitant]
     Active Substance: RANITIDINE
     Dosage: 300 MG, 1X/DAY
     Route: 048
     Dates: start: 20140312, end: 20140315
  37. PREGABALIN. [Concomitant]
     Active Substance: PREGABALIN
     Dosage: 150 MG, 1X/DAY
     Dates: end: 20140827
  38. FENTANYL. [Concomitant]
     Active Substance: FENTANYL
     Dosage: 18 MCG / HOUR
     Dates: start: 20140820, end: 20140822
  39. ONDANSETRON [Concomitant]
     Active Substance: ONDANSETRON
     Dosage: 4 MG, UNK
     Dates: start: 20141013, end: 20141019
  40. CYCLIZINE [Concomitant]
     Active Substance: CYCLIZINE
     Dosage: 150 MG, UNK
     Dates: start: 20141013
  41. LORAZEPAM. [Concomitant]
     Active Substance: LORAZEPAM
     Dosage: UNK
     Route: 048
     Dates: start: 20140423
  42. DEXAMETHASONE. [Concomitant]
     Active Substance: DEXAMETHASONE
     Dosage: 8 MG, EVERY 3 WEEKS
     Route: 042
     Dates: start: 20140207, end: 20140207
  43. DEXAMETHASONE. [Concomitant]
     Active Substance: DEXAMETHASONE
     Dosage: 20 MG, UNK
     Route: 048
     Dates: start: 20140312, end: 20140313
  44. CARBOPLATIN. [Concomitant]
     Active Substance: CARBOPLATIN
     Indication: CHEMOTHERAPY
     Dosage: 4.0 AUC
     Route: 042
     Dates: start: 20140117
  45. FLUOXETINE [Concomitant]
     Active Substance: FLUOXETINE HYDROCHLORIDE
     Indication: DEPRESSION
     Dosage: 1 UNK, UNK
     Route: 048
     Dates: start: 201312
  46. PREGABALIN. [Concomitant]
     Active Substance: PREGABALIN
     Dosage: 200 MG, UNK
     Route: 065
     Dates: start: 201408
  47. PREGABALIN. [Concomitant]
     Active Substance: PREGABALIN
     Dosage: 200 MG, 1X/DAY
     Dates: start: 20140827
  48. AMITRIPTYLINE [Concomitant]
     Active Substance: AMITRIPTYLINE
     Indication: DEPRESSION
     Dosage: UNK
     Route: 065
     Dates: start: 20140817, end: 20140827
  49. FENTANYL. [Concomitant]
     Active Substance: FENTANYL
     Dosage: 12 MCG/HRPATCH
  50. ONDANSETRON [Concomitant]
     Active Substance: ONDANSETRON
     Dosage: 8 MG, UNK
     Route: 048
     Dates: start: 20140220, end: 20140224
  51. MAGNASPARTATE [Concomitant]
     Dosage: 19.5 MG, 1X/DAY
     Route: 048
     Dates: start: 201311
  52. MAGNASPARTATE [Concomitant]
     Dosage: 1-2 SACHETS
     Route: 048
  53. APREPITANT. [Concomitant]
     Active Substance: APREPITANT
     Dosage: 125 MG (ONE HOUR PRE CHEMO)
     Route: 048
     Dates: start: 20140220, end: 20140220
  54. NAPROXEN. [Concomitant]
     Active Substance: NAPROXEN
     Indication: INFLAMMATION
     Dosage: 1000 MG, UNK
     Dates: start: 201407
  55. NAPROXEN. [Concomitant]
     Active Substance: NAPROXEN
     Dosage: 40 MG, UNK
  56. DEXAMETHASONE. [Concomitant]
     Active Substance: DEXAMETHASONE
     Dosage: 3 UNK, 1X/DAY
     Route: 048
     Dates: start: 20140222, end: 20140225
  57. MIRTAZAPINE. [Concomitant]
     Active Substance: MIRTAZAPINE
     Dosage: 15 MG, UNK
     Dates: start: 20140820, end: 201410
  58. PARACETAMOL [Concomitant]
     Active Substance: ACETAMINOPHEN
     Indication: ANALGESIC THERAPY
     Dosage: 4 G, 1X/DAY
     Route: 048
     Dates: start: 201312
  59. DALTEPARIN [Concomitant]
     Active Substance: DALTEPARIN
     Dosage: 15000 IU (DOSE REDUCES AFTER 1 MONTH AS PER BNF)
     Route: 058
     Dates: start: 20140324
  60. CYCLIZINE [Concomitant]
     Active Substance: CYCLIZINE
     Dosage: 50 MG, UNK
     Route: 048
     Dates: start: 20140221
  61. CYCLIZINE [Concomitant]
     Active Substance: CYCLIZINE
     Dosage: 3X/DAILY AS NEEDED (TDS PRN)
     Dates: start: 2014
  62. MORPHINE SULFATE. [Concomitant]
     Active Substance: MORPHINE SULFATE
     Dosage: AS NEEDED (10 MG/5MLS SYRUP ; 5-20 MG PRN)
     Route: 048
  63. NAPROXEN. [Concomitant]
     Active Substance: NAPROXEN
     Dosage: 1500 MG, 1X/DAY
     Route: 048
     Dates: start: 20140314
  64. DEXAMETHASONE. [Concomitant]
     Active Substance: DEXAMETHASONE
     Dosage: 20 MG (12 HRS OR 6 HRS PRE CHEMO)
     Route: 048
     Dates: start: 20140219, end: 20140220
  65. DIAZEPAM. [Concomitant]
     Active Substance: DIAZEPAM
     Dosage: 5 MG, AS NEEDED
     Route: 048
     Dates: start: 201408
  66. MOMETASONE [Concomitant]
     Active Substance: MOMETASONE
     Dosage: 2 SPRAYS
     Route: 045
  67. MANNITOL. [Concomitant]
     Active Substance: MANNITOL
     Dosage: PRE-CISPLATIN AS PART OF CHEMOTHERAPY REGIME
     Route: 042
     Dates: start: 20140313, end: 20140313
  68. RANITIDINE. [Concomitant]
     Active Substance: RANITIDINE
     Dosage: 50 MG, UNK
     Route: 042
     Dates: start: 20140220, end: 20140220
  69. PREGABALIN. [Concomitant]
     Active Substance: PREGABALIN
     Dosage: UNK
     Dates: start: 2014
  70. CODEINE [Concomitant]
     Active Substance: CODEINE
     Indication: ANALGESIC THERAPY
     Dosage: 60 MG, 1X/DAY
     Route: 048
     Dates: start: 20140422
  71. DALTEPARIN [Concomitant]
     Active Substance: DALTEPARIN
     Dosage: 15000 IU, UNK
     Dates: start: 20140817
  72. FENTANYL. [Concomitant]
     Active Substance: FENTANYL
     Dosage: 25 MCG / HOUR
     Route: 065
     Dates: start: 20140822
  73. ONDANSETRON [Concomitant]
     Active Substance: ONDANSETRON
     Dosage: 4 MG, AS NEEDED
  74. MAGNASPARTATE [Concomitant]
     Dosage: 1 SACHET
     Route: 048
     Dates: start: 20140423
  75. NAPROXEN. [Concomitant]
     Active Substance: NAPROXEN
     Dosage: 500 MG, ONCE
     Route: 048
     Dates: start: 20140422, end: 20140422
  76. GEMCITABINE [Concomitant]
     Active Substance: GEMCITABINE\GEMCITABINE HYDROCHLORIDE
     Dosage: 1500 MG, UNK
     Route: 042
     Dates: start: 20140220, end: 20140220
  77. DEXAMETHASONE. [Concomitant]
     Active Substance: DEXAMETHASONE
     Dosage: 6 MG, 1X/DAY
     Route: 048
     Dates: start: 20140313, end: 20140317
  78. OMEPRAZOLE. [Concomitant]
     Active Substance: OMEPRAZOLE
     Indication: GASTROOESOPHAGEAL REFLUX DISEASE
     Dosage: 40 MG, 1X/DAY
     Route: 048

REACTIONS (21)
  - Headache [Recovered/Resolved]
  - Diarrhoea [Recovered/Resolved]
  - Nausea [Recovered/Resolved with Sequelae]
  - Lower respiratory tract infection [Recovered/Resolved]
  - Abdominal pain upper [Recovered/Resolved with Sequelae]
  - Abdominal distension [Recovered/Resolved with Sequelae]
  - Constipation [Not Recovered/Not Resolved]
  - Toothache [Recovered/Resolved]
  - Pulmonary embolism [Recovered/Resolved]
  - Arthralgia [Not Recovered/Not Resolved]
  - Epistaxis [Recovered/Resolved]
  - Thrombophlebitis superficial [Recovered/Resolved]
  - Lethargy [Not Recovered/Not Resolved]
  - Dyspepsia [Recovered/Resolved]
  - Hypersensitivity [Recovered/Resolved]
  - Enthesopathy [Not Recovered/Not Resolved]
  - Oral herpes [Recovered/Resolved]
  - Tooth infection [Recovered/Resolved]
  - Musculoskeletal pain [Recovered/Resolved]
  - Small intestinal obstruction [Recovered/Resolved with Sequelae]
  - Abdominal pain [Recovered/Resolved with Sequelae]

NARRATIVE: CASE EVENT DATE: 201305
